FAERS Safety Report 9520196 (Version 1)
Quarter: 2013Q3

REPORT INFORMATION
  Report Type: Spontaneous
  Country: US (occurrence: US)
  Receive Date: 20130912
  Receipt Date: 20130912
  Transmission Date: 20140515
  Serious: Yes (Other)
  Sender: FDA-Public Use
  Company Number: US-MUTUAL PHARMACEUTICAL COMPANY, INC.-BCTM20130056

PATIENT
  Age: 64 Year
  Sex: Male

DRUGS (2)
  1. BACTRIM [Suspect]
     Indication: STAPHYLOCOCCAL INFECTION
     Route: 065
  2. CIMZIA [Suspect]
     Indication: RHEUMATOID ARTHRITIS
     Route: 065
     Dates: start: 20120702

REACTIONS (1)
  - Renal failure [Recovered/Resolved]
